FAERS Safety Report 8915967 (Version 1)
Quarter: 2012Q4

REPORT INFORMATION
  Report Type: 
  Country: US (occurrence: US)
  Receive Date: 20121119
  Receipt Date: 20121119
  Transmission Date: 20130627
  Serious: Yes (Other)
  Sender: FDA-Public Use
  Company Number: US-GLAXOSMITHKLINE-A0989084A

PATIENT
  Age: 69 Year
  Sex: Female

DRUGS (11)
  1. ADVAIR [Suspect]
     Indication: ASTHMA
     Dosage: 1PUFF Twice per day
     Route: 055
     Dates: start: 2011
  2. PREVACID [Concomitant]
  3. VENTOLIN HFA [Concomitant]
  4. LEVOTHYROXIN [Concomitant]
  5. DETROL LA [Concomitant]
  6. AMLODIPINE [Concomitant]
  7. QUINAPRIL HYDROCHLORIDE [Concomitant]
  8. RESTASIS [Concomitant]
  9. CALCIUM + MAGNESIUM WITH VIT D + ZINC AVON [Concomitant]
  10. BABY ASPIRIN [Concomitant]
  11. CO Q10 [Concomitant]

REACTIONS (2)
  - Oesophageal candidiasis [Recovered/Resolved]
  - Gastrointestinal candidiasis [Unknown]
